FAERS Safety Report 24588137 (Version 1)
Quarter: 2024Q4

REPORT INFORMATION
  Report Type: Spontaneous
  Country: US (occurrence: US)
  Receive Date: 20241107
  Receipt Date: 20241107
  Transmission Date: 20250115
  Serious: Yes (Other)
  Sender: BAYER HEALTHCARE PHARMACEUTICALS INC.
  Company Number: US-BAYER-2024A154260

PATIENT
  Age: 13 Year
  Sex: Male

DRUGS (4)
  1. KOVALTRY [Suspect]
     Active Substance: ANTIHEMOPHILIC FACTOR, HUMAN RECOMBINANT
     Indication: Factor VIII deficiency
     Dosage: 3000/3000 IU PRN
     Route: 042
     Dates: start: 202212
  2. KOVALTRY [Suspect]
     Active Substance: ANTIHEMOPHILIC FACTOR, HUMAN RECOMBINANT
     Indication: Factor VIII deficiency
     Dosage: 2000 INJ/ INFUSE 2000 IU BIW
     Route: 042
     Dates: start: 202212
  3. KOVALTRY [Suspect]
     Active Substance: ANTIHEMOPHILIC FACTOR, HUMAN RECOMBINANT
     Indication: Factor VIII deficiency
     Dosage: 1 DF, PRN (UNSPECIFIED 1 PRN DOSE)
     Route: 042
     Dates: start: 20241026, end: 20241026
  4. KOVALTRY [Suspect]
     Active Substance: ANTIHEMOPHILIC FACTOR, HUMAN RECOMBINANT
     Indication: Factor VIII deficiency
     Dosage: 1 DF, PRN (UNSPECIFIED 1 PRN DOSE)
     Route: 042
     Dates: start: 20241028, end: 20241028

REACTIONS (2)
  - Haemorrhage [None]
  - Haemorrhage [None]

NARRATIVE: CASE EVENT DATE: 20240801
